FAERS Safety Report 13881663 (Version 6)
Quarter: 2017Q4

REPORT INFORMATION
  Report Type: Spontaneous
  Country: US (occurrence: US)
  Receive Date: 20170818
  Receipt Date: 20171121
  Transmission Date: 20180320
  Serious: Yes (Other)
  Sender: FDA-Public Use
  Company Number: PHEH2017US025818

PATIENT
  Sex: Female
  Weight: 75 kg

DRUGS (1)
  1. KISQALI [Suspect]
     Active Substance: RIBOCICLIB
     Indication: BREAST CANCER
     Dosage: UNK, QD
     Route: 048
     Dates: start: 201708

REACTIONS (7)
  - Somnolence [Unknown]
  - Fatigue [Unknown]
  - Lethargy [Unknown]
  - Musculoskeletal discomfort [Unknown]
  - White blood cell count decreased [Unknown]
  - Feeling cold [Unknown]
  - Syncope [Unknown]
